FAERS Safety Report 9922569 (Version 1)
Quarter: 2014Q1

REPORT INFORMATION
  Report Type: Report from Study
  Country: US (occurrence: US)
  Receive Date: 20140225
  Receipt Date: 20140225
  Transmission Date: 20141002
  Serious: No
  Sender: FDA-Public Use
  Company Number: PHEH2014US003520

PATIENT
  Age: 77 Year
  Sex: Male

DRUGS (17)
  1. TASIGNA [Suspect]
     Indication: CHRONIC MYELOID LEUKAEMIA
     Dosage: 300 MG, Q12H
     Route: 048
     Dates: start: 20140129
  2. TYLENOL [Concomitant]
     Dosage: UNK UKN, UNK
  3. SPIRIVA [Concomitant]
     Dosage: UNK UKN, UNK
  4. PROVENTIL [Concomitant]
     Dosage: UNK UKN, UNK
  5. MULTI-VIT [Concomitant]
     Dosage: UNK UKN, UNK
  6. LIPITOR [Concomitant]
     Dosage: UNK UKN, UNK
  7. LEVOTHYROXINE [Concomitant]
     Dosage: UNK UKN, UNK
  8. KLOR-CON [Concomitant]
     Dosage: UNK UKN, UNK
  9. GLUCOSAMINE [Concomitant]
     Dosage: UNK UKN, UNK
  10. LASIX [Concomitant]
     Dosage: UNK UKN, UNK
  11. DOXAZOSIN [Concomitant]
     Dosage: UNK UKN, UNK
  12. DONEPEZIL [Concomitant]
     Dosage: UNK UKN, UNK
  13. DILTIAZEM [Concomitant]
     Dosage: UNK UKN, UNK
  14. CALCIUM [Concomitant]
     Dosage: UNK UKN, UNK
  15. AVODART [Concomitant]
     Dosage: UNK UKN, UNK
  16. ALLOPURINOL [Concomitant]
     Dosage: UNK UKN, UNK
  17. ADVAIR [Concomitant]
     Dosage: UNK UKN, UNK

REACTIONS (1)
  - Fatigue [Not Recovered/Not Resolved]
